FAERS Safety Report 24023958 (Version 1)
Quarter: 2024Q2

REPORT INFORMATION
  Report Type: Report from Study
  Country: CZ (occurrence: CZ)
  Receive Date: 20240627
  Receipt Date: 20240627
  Transmission Date: 20240715
  Serious: No
  Sender: FDA-Public Use
  Company Number: CZ-ROCHE-3343160

PATIENT
  Age: 57 Year
  Sex: Female

DRUGS (3)
  1. ALECTINIB [Suspect]
     Active Substance: ALECTINIB
     Indication: Non-small cell lung cancer metastatic
     Route: 048
     Dates: start: 20230228
  2. RILMENIDINE [Concomitant]
     Active Substance: RILMENIDINE
     Route: 048
  3. LACTULOSE [Concomitant]
     Active Substance: LACTULOSE
     Route: 048

REACTIONS (2)
  - Dysgeusia [Recovered/Resolved]
  - Flatulence [Recovered/Resolved]

NARRATIVE: CASE EVENT DATE: 20230313
